FAERS Safety Report 10794840 (Version 1)
Quarter: 2015Q1

REPORT INFORMATION
  Report Type: Spontaneous
  Country: US (occurrence: US)
  Receive Date: 20150213
  Receipt Date: 20150213
  Transmission Date: 20150721
  Serious: Yes (Death, Hospitalization, Other)
  Sender: FDA-Public Use
  Company Number: US-GSKJP-DK201012178002

PATIENT
  Sex: Male
  Weight: 101 kg

DRUGS (5)
  1. MELPHALAN [Suspect]
     Active Substance: MELPHALAN
     Indication: PLASMA CELL MYELOMA
  2. MORPHINE [Suspect]
     Active Substance: MORPHINE
     Route: 048
  3. VELCADE [Suspect]
     Active Substance: BORTEZOMIB
     Indication: PLASMA CELL MYELOMA
     Dosage: 1.5 MG/M2 ON DAYS 1,4,8,11 EVERY CYCLE
     Route: 042
     Dates: start: 20100317, end: 20100429
  4. PREDNISONE. [Concomitant]
     Active Substance: PREDNISONE
     Dosage: 60 MG/M2, QD, DAYS 1-4 EVERY 6 WEEKS FOR 9 CYCLES WITH MELPHALAN
     Route: 048
  5. MELPHALAN [Suspect]
     Active Substance: MELPHALAN
     Indication: PLASMA CELL MYELOMA
     Dosage: 9MG/M2ON FOLLOW-UP REPORTED AS 18 MG ON DAYS 1-4 OF EACH CYCLE
     Route: 048
     Dates: start: 20100317, end: 20100429

REACTIONS (6)
  - Ulcer [Recovered/Resolved]
  - Plasma cell myeloma [Fatal]
  - Nausea [Recovered/Resolved]
  - Anaemia [Unknown]
  - Cardiac failure [Unknown]
  - Vomiting [Recovered/Resolved]
